FAERS Safety Report 7768400-X (Version None)
Quarter: 2011Q3

REPORT INFORMATION
  Report Type: 
  Country: None (occurrence: None)
  Receive Date: 20110922
  Receipt Date: 20100812
  Transmission Date: 20111222
  Serious: No
  Sender: FDA-Public Use
  Company Number: US-ASTRAZENECA-2010SE37913

PATIENT
  Age: 205 Month
  Sex: Female
  Weight: 34 kg

DRUGS (4)
  1. SEROQUEL [Suspect]
     Indication: AGGRESSION
     Route: 048
     Dates: start: 20100715, end: 20100810
  2. TRILEPTAL [Concomitant]
  3. BENZTROPINE MESYLATE [Concomitant]
  4. SEROQUEL [Suspect]
     Route: 048
     Dates: start: 20100811

REACTIONS (4)
  - CONTUSION [None]
  - HEAD BANGING [None]
  - AGGRESSION [None]
  - DRUG INEFFECTIVE FOR UNAPPROVED INDICATION [None]
